FAERS Safety Report 7557661-8 (Version None)
Quarter: 2011Q2

REPORT INFORMATION
  Report Type: 
  Country: None (occurrence: None)
  Receive Date: 20110610
  Receipt Date: 20110525
  Transmission Date: 20111010
  Serious: Yes (Other)
  Sender: FDA-Public Use
  Company Number: CIO11009344

PATIENT
  Age: 69 Year
  Sex: Male

DRUGS (3)
  1. CARDIAC THERAPY [Concomitant]
  2. LIPITOR [Concomitant]
  3. METAMUCIL CAPSULES (PSYLLIUM HYDROPHLIC MUCILLOID 3.2 G) CAPSULE, 6CAP [Suspect]
     Indication: BOWEL MOVEMENT IRREGULARITY
     Dosage: 2 CAPSUL, MORNING, ORAL
     Route: 048
     Dates: start: 20100801

REACTIONS (2)
  - NEPHROLITHIASIS [None]
  - WRONG TECHNIQUE IN DRUG USAGE PROCESS [None]
